FAERS Safety Report 8322820-3 (Version None)
Quarter: 2012Q2

REPORT INFORMATION
  Report Type: 
  Country: None (occurrence: None)
  Receive Date: 20120430
  Receipt Date: 20120420
  Transmission Date: 20120825
  Serious: Yes (Other)
  Sender: FDA-Public Use
  Company Number: JP-ROCHE-GNE314398

PATIENT
  Sex: Male
  Weight: 57.061 kg

DRUGS (15)
  1. RANIBIZUMAB [Suspect]
     Dosage: 5 TH INJECTION IN RIGHT EYE
     Route: 050
     Dates: start: 20100811
  2. RANIBIZUMAB [Suspect]
     Dosage: 3 RD INJECTION AT LEFT EYE
     Route: 050
     Dates: start: 20090909
  3. RANIBIZUMAB [Suspect]
     Dosage: 4 TH INJECTION IN RIGHT EYE
     Route: 050
     Dates: start: 20100701
  4. RANIBIZUMAB [Suspect]
     Dosage: 2 ND INJECTION IN LEFT EYE
     Route: 050
     Dates: start: 20090812
  5. RANIBIZUMAB [Suspect]
     Dosage: 3 RD INJECTION  IN RIGHT EYE
     Route: 050
     Dates: start: 20100527
  6. RANIBIZUMAB [Suspect]
     Dosage: 6 TH INJECTION IN RIGHT EYE
     Route: 050
     Dates: start: 20100916
  7. RANIBIZUMAB [Suspect]
     Indication: AGE-RELATED MACULAR DEGENERATION
     Dosage: FIRST INJECTION IN LEFT EYE
     Route: 050
     Dates: start: 20090708
  8. RANIBIZUMAB [Suspect]
     Dosage: 2 ND INJECTION  IN RIGHT EYE
     Route: 050
     Dates: start: 20100430
  9. RANIBIZUMAB [Suspect]
     Dosage: 9TH INJECTION IN RIGHT EYE
     Route: 050
     Dates: start: 20110224, end: 20110224
  10. VISUDYNE [Concomitant]
     Indication: PRODUCT USED FOR UNKNOWN INDICATION
     Dosage: UNK
     Dates: start: 20081101, end: 20081101
  11. RANIBIZUMAB [Suspect]
     Dosage: INITIAL INJECTION IN RIGHT EYE
     Route: 050
     Dates: start: 20100324
  12. RANIBIZUMAB [Suspect]
     Dosage: 7 TH INJECTION IN RIGHT EYE
     Route: 050
     Dates: start: 20101014
  13. PRANOPROFEN [Concomitant]
     Indication: PRODUCT USED FOR UNKNOWN INDICATION
     Dosage: UNK
     Dates: start: 20090210
  14. RANIBIZUMAB [Suspect]
     Dosage: 8 TH INJECTION IN RIGHT EYE
     Route: 050
     Dates: start: 20101209
  15. URINORM [Concomitant]
     Indication: PRODUCT USED FOR UNKNOWN INDICATION

REACTIONS (4)
  - INTRAOCULAR PRESSURE INCREASED [None]
  - VISUAL ACUITY REDUCED [None]
  - SCOTOMA [None]
  - RETINAL HAEMORRHAGE [None]
